FAERS Safety Report 7137158-X (Version None)
Quarter: 2010Q4

REPORT INFORMATION
  Report Type: 
  Country: None (occurrence: None)
  Receive Date: 20101206
  Receipt Date: 20070914
  Transmission Date: 20110411
  Serious: Yes (Death)
  Sender: FDA-Public Use
  Company Number: US-ACTELION-A-US2006-16652

PATIENT

DRUGS (8)
  1. ILOPROST INHALATION SOLUTION 5UG US [Suspect]
     Indication: PULMONARY ARTERIAL HYPERTENSION
     Dosage: 5 UG, 7 X DAY
     Route: 055
     Dates: start: 20061016, end: 20070914
  2. SILDENAFIL [Concomitant]
  3. NEURONTIN [Concomitant]
  4. K-DUR [Concomitant]
  5. WARFARIN SODIUM [Concomitant]
  6. LASIX [Concomitant]
  7. NEXIUM [Concomitant]
  8. TRACLEER [Concomitant]
     Indication: PULMONARY ARTERIAL HYPERTENSION

REACTIONS (7)
  - BLUNTED AFFECT [None]
  - CHEST PAIN [None]
  - DEATH [None]
  - DYSARTHRIA [None]
  - LOSS OF CONSCIOUSNESS [None]
  - NAUSEA [None]
  - VOMITING [None]
